FAERS Safety Report 7573508-8 (Version None)
Quarter: 2011Q2

REPORT INFORMATION
  Report Type: 
  Country: None (occurrence: None)
  Receive Date: 20110627
  Receipt Date: 20110621
  Transmission Date: 20111010
  Serious: Yes (Death, Other)
  Sender: FDA-Public Use
  Company Number: PHHY2011TR55869

PATIENT
  Age: 13 Month
  Sex: Female
  Weight: 10 kg

DRUGS (4)
  1. SODIUM BICARBONATE [Concomitant]
  2. FRESH FROZEN PLASMA [Concomitant]
     Dosage: 4 DF, UNK
  3. MIDAZOLAM HCL [Concomitant]
     Indication: SEDATION
  4. DICLOFENAC SODIUM [Suspect]
     Indication: PAIN
     Dosage: 40 MG, ONCE/SINGLE
     Route: 030

REACTIONS (10)
  - LIVER FUNCTION TEST ABNORMAL [None]
  - ACCIDENTAL OVERDOSE [None]
  - HEART RATE INCREASED [None]
  - PNEUMOTHORAX [None]
  - CIRCULATORY COLLAPSE [None]
  - URINE COLOUR ABNORMAL [None]
  - RHABDOMYOLYSIS [None]
  - BLOOD LACTATE DEHYDROGENASE INCREASED [None]
  - PNEUMOPERITONEUM [None]
  - METABOLIC ACIDOSIS [None]
